FAERS Safety Report 5233967-2 (Version None)
Quarter: 2007Q1

REPORT INFORMATION
  Report Type: 
  Country: None (occurrence: None)
  Receive Date: 20070208
  Receipt Date: 20070125
  Transmission Date: 20070707
  Serious: Yes (Other)
  Sender: FDA-Public Use
  Company Number: US-PFIZER INC-2006116145

PATIENT
  Sex: Female
  Weight: 71.7 kg

DRUGS (13)
  1. BEXTRA [Suspect]
     Indication: PAIN
     Route: 048
  2. BEXTRA [Suspect]
     Indication: INFLAMMATION
  3. BEXTRA [Suspect]
     Indication: OSTEOARTHRITIS
  4. VIOXX [Concomitant]
     Route: 048
  5. PLAVIX [Concomitant]
     Route: 048
  6. ATENOLOL [Concomitant]
     Route: 048
  7. LASIX [Concomitant]
     Route: 048
  8. LOTENSIN [Concomitant]
     Route: 048
  9. ZOCOR [Concomitant]
     Route: 048
  10. XANAX [Concomitant]
     Route: 048
  11. DITROPAN [Concomitant]
     Route: 048
  12. ACCUPRIL [Concomitant]
     Route: 048
  13. LESCOL [Concomitant]
     Route: 048

REACTIONS (2)
  - BLINDNESS [None]
  - CEREBROVASCULAR ACCIDENT [None]
